FAERS Safety Report 21565999 (Version 2)
Quarter: 2022Q4

REPORT INFORMATION
  Report Type: Report from Study
  Country: US (occurrence: US)
  Receive Date: 20221108
  Receipt Date: 20221122
  Transmission Date: 20230112
  Serious: Yes (Death, Hospitalization)
  Sender: FDA-Public Use
  Company Number: US-EXELIXIS-XL18422055362

PATIENT

DRUGS (3)
  1. CABOZANTINIB [Suspect]
     Active Substance: CABOZANTINIB
     Indication: Phaeochromocytoma
     Dosage: 40 MG ALTERNATING WITH 20 MG DAILY
     Route: 048
     Dates: start: 20210513
  2. CABOZANTINIB [Suspect]
     Active Substance: CABOZANTINIB
     Indication: Paraganglion neoplasm
     Dosage: 20 MG, QD
     Route: 048
  3. CABOZANTINIB [Suspect]
     Active Substance: CABOZANTINIB
     Dosage: 40 MG ALTERNATING WITH 20 MG DAILY
     Route: 048
     Dates: end: 20221022

REACTIONS (3)
  - Cardiac failure [Fatal]
  - Small intestinal obstruction [Unknown]
  - Constipation [Unknown]

NARRATIVE: CASE EVENT DATE: 20220828
